FAERS Safety Report 12628998 (Version 2)
Quarter: 2017Q1

REPORT INFORMATION
  Report Type: Spontaneous
  Country: IT (occurrence: IT)
  Receive Date: 20160808
  Receipt Date: 20170127
  Transmission Date: 20170428
  Serious: Yes (Other)
  Sender: FDA-Public Use
  Company Number: IT-TEVA-681791ACC

PATIENT
  Age: 85 Year
  Sex: Male

DRUGS (13)
  1. RIVOTRIL [Interacting]
     Active Substance: CLONAZEPAM
     Indication: ABNORMAL BEHAVIOUR
     Dosage: 12 DOSAGE FORMS DAILY;
     Route: 048
     Dates: start: 20150407, end: 20150531
  2. PANTORC - 20 MG CPR GASTRORESISTENTI TAKEDA ITALIA S.P.A [Concomitant]
     Indication: GASTRITIS PROPHYLAXIS
     Dosage: 20 MG
     Route: 048
  3. LACIREX - 4 MG COMPRESSE RIVESTITE CON FILM LABORATORI GUIDOTTI S.P.A [Concomitant]
     Indication: HYPERTENSION
     Dosage: 1 DF
     Route: 048
  4. LACTULOSE. [Concomitant]
     Active Substance: LACTULOSE
     Indication: PRODUCT USED FOR UNKNOWN INDICATION
     Dosage: 60 ML
     Route: 048
  5. TRAZODONE HYDROCHLORIDE. [Interacting]
     Active Substance: TRAZODONE HYDROCHLORIDE
     Indication: COGNITIVE DISORDER
     Dosage: 15 DOSAGE FORMS DAILY;
     Route: 048
     Dates: start: 20150410, end: 20150531
  6. DEPAKIN - 500 MG COMPRESSE GASTRORESISTENTI - SANOFI S.P.A. [Suspect]
     Active Substance: VALPROATE SODIUM
     Indication: COGNITIVE DISORDER
     Dosage: 2 DOSAGE FORMS DAILY;
     Route: 048
  7. TENORMIN - 100 MG COMPRESSE-ASTRAZENECA S.P.A [Concomitant]
     Indication: CARDIAC DISORDER
     Dosage: 25 MG
     Route: 048
  8. CARDIOASPIRIN - 100 MG COMPRESSE GASTRORESISTENTI BAYER S.P.A. [Concomitant]
     Indication: PLATELET AGGREGATION INHIBITION
  9. METFORMIN [Concomitant]
     Active Substance: METFORMIN HYDROCHLORIDE
     Indication: DIABETES MELLITUS
     Dosage: 500 MG
     Route: 048
  10. EBIXA - 10 MG COMPRESSE FILMRIVESTITE - H. LUNDBECK A/S [Interacting]
     Active Substance: MEMANTINE HYDROCHLORIDE
     Indication: COGNITIVE DISORDER
  11. PARACETAMOL [Concomitant]
     Active Substance: ACETAMINOPHEN
     Indication: PROCEDURAL PAIN
     Dosage: 2 G
     Route: 048
     Dates: start: 20150407, end: 20150531
  12. QUETIAPINA TEVA - 25 MG COMPRESSE RIVESTITE CON FILM - TEVA ITALIA S.R [Suspect]
     Active Substance: QUETIAPINE
     Indication: ABNORMAL BEHAVIOUR
     Dosage: 2 DOSAGE FORMS DAILY;
     Route: 048
  13. FLUXUM - 4.250 U.I SOLUZIONE INIETTABILE 0.4 ML - ALFA WASSERMANN S.P. [Suspect]
     Active Substance: PARNAPARIN SODIUM
     Indication: THROMBOSIS PROPHYLAXIS
     Route: 058
     Dates: start: 20150407, end: 20150531

REACTIONS (2)
  - Drug interaction [Unknown]
  - Sopor [Recovered/Resolved]

NARRATIVE: CASE EVENT DATE: 20150531
